FAERS Safety Report 8145426-8 (Version None)
Quarter: 2012Q1

REPORT INFORMATION
  Report Type: 
  Country: None (occurrence: None)
  Receive Date: 20120217
  Receipt Date: 20120208
  Transmission Date: 20120608
  Serious: Yes (Hospitalization)
  Sender: FDA-Public Use
  Company Number: US-ABBOTT-12P-163-0902919-00

PATIENT
  Sex: Female

DRUGS (16)
  1. HUMIRA [Suspect]
  2. RELAFEN [Concomitant]
     Indication: RHEUMATOID ARTHRITIS
  3. LISINOPRIL [Concomitant]
     Indication: HYPERTENSION
  4. HUMIRA [Suspect]
     Indication: RHEUMATOID ARTHRITIS
     Dates: start: 20080601
  5. PROMETRIUM [Concomitant]
     Indication: HORMONE REPLACEMENT THERAPY
  6. ATENOLOL [Concomitant]
     Indication: HYPERTENSION
  7. FISH OIL [Concomitant]
     Indication: PRODUCT USED FOR UNKNOWN INDICATION
  8. ESTRADIOL [Concomitant]
     Indication: HORMONE REPLACEMENT THERAPY
  9. CALCIUM [Concomitant]
     Indication: MINERAL SUPPLEMENTATION
  10. ALLOPURINOL [Concomitant]
     Indication: BLOOD URIC ACID INCREASED
  11. HYDROCHLOROTHIAZIDE [Concomitant]
     Indication: HYPERTENSION
  12. ASPIRIN [Concomitant]
     Indication: PRODUCT USED FOR UNKNOWN INDICATION
  13. ASCORBIC ACID [Concomitant]
     Indication: VITAMIN SUPPLEMENTATION
  14. METHOTREXATE [Concomitant]
     Indication: RHEUMATOID ARTHRITIS
  15. FOLIC ACID [Concomitant]
     Indication: VITAMIN SUPPLEMENTATION
  16. SIMVASTATIN [Concomitant]
     Indication: BLOOD CHOLESTEROL INCREASED

REACTIONS (10)
  - CONTUSION [None]
  - PAIN IN EXTREMITY [None]
  - ERYTHEMA [None]
  - SKIN NECROSIS [None]
  - BLISTER INFECTED [None]
  - SECRETION DISCHARGE [None]
  - SINUSITIS [None]
  - LIMB INJURY [None]
  - NASOPHARYNGITIS [None]
  - BLISTER [None]
